FAERS Safety Report 11603300 (Version 1)
Quarter: 2015Q4

REPORT INFORMATION
  Report Type: Spontaneous
  Country: US (occurrence: None)
  Receive Date: 20151005
  Receipt Date: 20151005
  Transmission Date: 20160304
  Serious: Yes (Life-Threatening, Hospitalization, Disabling)
  Sender: FDA-Public Use
  Company Number: None

PATIENT
  Age: 30 Year
  Sex: Male
  Weight: 81.65 kg

DRUGS (1)
  1. CIPROFLOXACIN 500MGS BAYER [Suspect]
     Active Substance: CIPROFLOXACIN
     Indication: INFECTION PROPHYLAXIS
     Route: 048
     Dates: start: 20140903, end: 20140908

REACTIONS (28)
  - Tendon disorder [None]
  - Tachycardia [None]
  - Suicidal ideation [None]
  - Suicide attempt [None]
  - Anxiety [None]
  - Weight decreased [None]
  - Arthropathy [None]
  - Vision blurred [None]
  - Alopecia [None]
  - Psychotic disorder [None]
  - Chills [None]
  - Tinnitus [None]
  - Blood testosterone decreased [None]
  - Impaired healing [None]
  - Hallucination [None]
  - Nausea [None]
  - Pyrexia [None]
  - Deafness [None]
  - Rash [None]
  - Swelling [None]
  - Blood urine present [None]
  - Hyperhidrosis [None]
  - Blindness transient [None]
  - Insomnia [None]
  - Internal haemorrhage [None]
  - Diarrhoea [None]
  - Gingival swelling [None]
  - Head discomfort [None]

NARRATIVE: CASE EVENT DATE: 20140903
